FAERS Safety Report 8970908 (Version 2)
Quarter: 2013Q1

REPORT INFORMATION
  Report Type: Spontaneous
  Country: US (occurrence: US)
  Receive Date: 20121218
  Receipt Date: 20130213
  Transmission Date: 20140127
  Serious: Yes (Other)
  Sender: FDA-Public Use
  Company Number: US-VERTEX PHARMACEUTICALS INC.-2012-026244

PATIENT
  Age: 56 None
  Sex: Female
  Weight: 63 kg

DRUGS (9)
  1. INCIVEK [Suspect]
     Indication: HEPATITIS C
     Dosage: 750 MG, TID
     Route: 048
     Dates: start: 20121116, end: 20121207
  2. RIBAVIRIN [Suspect]
     Indication: HEPATITIS C
     Dosage: 600MG AM, 400 MG PM, QD
     Route: 048
     Dates: start: 20121116, end: 20121207
  3. PEGASYS [Suspect]
     Indication: HEPATITIS C
     Dosage: 180 ?G, QW
     Route: 058
     Dates: start: 20121116, end: 20121207
  4. TAMOXIFEN [Concomitant]
     Indication: BREAST CANCER
     Dosage: UNK, QD
     Route: 048
  5. LISINOPRIL [Concomitant]
     Indication: HYPERTENSION
     Dosage: UNK, QD
     Route: 048
  6. HYDROCHLOROTH [Concomitant]
     Indication: HYPERTENSION
     Dosage: UNK, QD
     Route: 048
  7. XANAX [Concomitant]
     Indication: ANXIETY
     Dosage: UNK, PRN
     Route: 048
  8. PRILOSEC [Concomitant]
     Dosage: 40 MG, BID
     Route: 048
  9. TRAZODONE [Concomitant]
     Dosage: 1 DF, AT BED TIME
     Route: 048

REACTIONS (12)
  - Transient ischaemic attack [Not Recovered/Not Resolved]
  - Balance disorder [Recovered/Resolved]
  - Disturbance in attention [Not Recovered/Not Resolved]
  - Confusional state [Not Recovered/Not Resolved]
  - Dysarthria [Recovered/Resolved]
  - Dizziness [Not Recovered/Not Resolved]
  - Feeling abnormal [Not Recovered/Not Resolved]
  - Flatulence [Unknown]
  - Asthenia [Unknown]
  - Fatigue [Not Recovered/Not Resolved]
  - Anaemia [Not Recovered/Not Resolved]
  - Nausea [Not Recovered/Not Resolved]
